FAERS Safety Report 18971200 (Version 1)
Quarter: 2021Q1

REPORT INFORMATION
  Report Type: Spontaneous
  Country: US (occurrence: US)
  Receive Date: 20210305
  Receipt Date: 20210305
  Transmission Date: 20210420
  Serious: No
  Sender: FDA-Public Use
  Company Number: US-ASTRAZENECA-2021A049100

PATIENT
  Sex: Female
  Weight: 84.4 kg

DRUGS (2)
  1. BYETTA [Suspect]
     Active Substance: EXENATIDE
     Indication: DIABETES MELLITUS
     Route: 065
  2. BYETTA [Suspect]
     Active Substance: EXENATIDE
     Indication: DIABETES MELLITUS
     Route: 065

REACTIONS (19)
  - Pruritus [Unknown]
  - Dyspnoea [Unknown]
  - Intentional product misuse [Unknown]
  - Ill-defined disorder [Unknown]
  - Weight increased [Unknown]
  - Dry eye [Unknown]
  - Anxiety [Unknown]
  - Condition aggravated [Unknown]
  - Swelling face [Unknown]
  - Blood glucose abnormal [Unknown]
  - Thyroid pain [Unknown]
  - Eye swelling [Unknown]
  - Stress [Unknown]
  - Thinking abnormal [Unknown]
  - Eye disorder [Unknown]
  - Rash [Unknown]
  - Paraesthesia [Unknown]
  - Drug ineffective [Unknown]
  - Off label use [Unknown]
